FAERS Safety Report 19364193 (Version 1)
Quarter: 2021Q2

REPORT INFORMATION
  Report Type: Spontaneous
  Country: US (occurrence: US)
  Receive Date: 20210603
  Receipt Date: 20210603
  Transmission Date: 20210717
  Serious: Yes (Disabling)
  Sender: FDA-Public Use
  Company Number: None

PATIENT
  Age: 32 Year
  Sex: Female
  Weight: 89.68 kg

DRUGS (9)
  1. NEXPLANON [Suspect]
     Active Substance: ETONOGESTREL
  2. DEPAKOTE [Concomitant]
     Active Substance: DIVALPROEX SODIUM
  3. CVS MIGRAINE MEDS [Concomitant]
  4. MUSCLE RELAXERS [Concomitant]
     Active Substance: UNSPECIFIED INGREDIENT
  5. GABAPENTIN. [Concomitant]
     Active Substance: GABAPENTIN
  6. KLONOPIN [Concomitant]
     Active Substance: CLONAZEPAM
  7. NEXPLANON [Concomitant]
     Active Substance: ETONOGESTREL
  8. VITAMIN D [Concomitant]
     Active Substance: VITAMIN D NOS
  9. EFFEXOR [Concomitant]
     Active Substance: VENLAFAXINE HYDROCHLORIDE

REACTIONS (14)
  - Hand fracture [None]
  - Mood swings [None]
  - Nausea [None]
  - Dizziness [None]
  - Weight increased [None]
  - Stress [None]
  - Complication associated with device [None]
  - Anger [None]
  - Alopecia [None]
  - Depression [None]
  - Acne [None]
  - Vitamin D deficiency [None]
  - Suicidal ideation [None]
  - Quality of life decreased [None]

NARRATIVE: CASE EVENT DATE: 20151215
